FAERS Safety Report 6173586-7 (Version None)
Quarter: 2009Q2

REPORT INFORMATION
  Report Type: 
  Country: None (occurrence: None)
  Receive Date: 20090429
  Receipt Date: 20090429
  Transmission Date: 20091009
  Serious: No
  Sender: FDA-Public Use
  Company Number: None

PATIENT
  Sex: Male
  Weight: 68 kg

DRUGS (3)
  1. LYRICA [Suspect]
     Dosage: 75MG CAPSULE 75 MG BID ORAL
     Route: 048
     Dates: start: 20090327, end: 20090428
  2. OMEPRAZOLE [Concomitant]
  3. OXYCODONE HCL [Concomitant]

REACTIONS (1)
  - DEPRESSION [None]
